FAERS Safety Report 25570182 (Version 1)
Quarter: 2025Q3

REPORT INFORMATION
  Report Type: Spontaneous
  Country: US (occurrence: US)
  Receive Date: 20250717
  Receipt Date: 20250717
  Transmission Date: 20251020
  Serious: No
  Sender: TOLMAR
  Company Number: US-Tolmar-TLM-2025-03765

PATIENT

DRUGS (2)
  1. FENSOLVI [Suspect]
     Active Substance: LEUPROLIDE ACETATE
     Indication: Precocious puberty
     Route: 065
     Dates: start: 20240620
  2. DEVICE [Suspect]
     Active Substance: DEVICE
     Indication: Precocious puberty
     Route: 065

REACTIONS (7)
  - Anxiety [Unknown]
  - Frustration tolerance decreased [Unknown]
  - Increased appetite [Unknown]
  - Weight increased [Unknown]
  - Depressive symptom [Unknown]
  - Emotional disorder [Unknown]
  - Anger [Unknown]
